FAERS Safety Report 4654011-1 (Version None)
Quarter: 2005Q2

REPORT INFORMATION
  Report Type: 
  Country: None (occurrence: None)
  Receive Date: 20050504
  Receipt Date: 20050421
  Transmission Date: 20051028
  Serious: Yes (Other)
  Sender: FDA-Public Use
  Company Number: L05-USA-01419-01

PATIENT
  Age: 55 Year
  Sex: Male

DRUGS (12)
  1. CITALOPRAM [Suspect]
     Indication: PANIC DISORDER
     Dosage: 20 MG QD
  2. CITALOPRAM [Suspect]
     Indication: PANIC DISORDER
     Dosage: 40 MG QD
  3. CITALOPRAM [Suspect]
     Indication: PANIC DISORDER
     Dosage: 60 MG QD
  4. CITALOPRAM [Suspect]
     Indication: PANIC DISORDER
     Dosage: 60 MG QD
  5. ESCITALOPRAM OXALATE [Suspect]
     Indication: PANIC DISORDER
  6. RIFAMPIN [Suspect]
     Indication: OSTEOMYELITIS
     Dosage: 600 MG BID PO
     Route: 048
  7. BUPROPION [Concomitant]
  8. LORAZEPAM [Concomitant]
  9. CLONAZEPAM [Concomitant]
  10. CLINDAMYCIN [Concomitant]
  11. VANCOMYCIN [Concomitant]
  12. SULFAMETHOXAZOLE + TRIMETHOPRIM [Concomitant]

REACTIONS (7)
  - ABDOMINAL DISCOMFORT [None]
  - CONDITION AGGRAVATED [None]
  - CRYING [None]
  - DRUG EFFECT DECREASED [None]
  - DRUG INTERACTION [None]
  - PANIC ATTACK [None]
  - TREATMENT NONCOMPLIANCE [None]
